FAERS Safety Report 6963236-1 (Version None)
Quarter: 2010Q3

REPORT INFORMATION
  Report Type: 
  Country: None (occurrence: None)
  Receive Date: 20100823
  Receipt Date: 20100720
  Transmission Date: 20110219
  Serious: No
  Sender: FDA-Public Use
  Company Number: 012094

PATIENT
  Sex: Female

DRUGS (3)
  1. CIMZIA [Suspect]
     Indication: CROHN'S DISEASE
     Dosage: (400 MG 1X/MONTH SUBCUTANEOUS)
     Route: 058
     Dates: start: 20081231
  2. CIMZIA [Suspect]
     Dosage: (400 MG 2X/MONTH SUBCUTANEOUS)
     Route: 058
     Dates: start: 20100702
  3. CIMZIA [Suspect]
     Dosage: (400 MG 1X/2 WEEKS SUBCUTANEOUS)
     Route: 058
     Dates: start: 20100714

REACTIONS (2)
  - ABDOMINAL PAIN [None]
  - INJECTION SITE PAIN [None]
